FAERS Safety Report 5244108-X (Version None)
Quarter: 2007Q1

REPORT INFORMATION
  Report Type: 
  Country: None (occurrence: None)
  Receive Date: 20070216
  Receipt Date: 20070203
  Transmission Date: 20070707
  Serious: Yes (Death, Other)
  Sender: FDA-Public Use
  Company Number: 2007US000281

PATIENT
  Age: 14 Year
  Sex: Male

DRUGS (1)
  1. AMBISOME [Suspect]
     Indication: MYOCARDITIS
     Dosage: 2MG/KG, UID/QD; IV NOS
     Route: 042

REACTIONS (3)
  - BLOOD PRESSURE DECREASED [None]
  - CONDITION AGGRAVATED [None]
  - GENERAL PHYSICAL HEALTH DETERIORATION [None]
